FAERS Safety Report 7970521-3 (Version None)
Quarter: 2011Q4

REPORT INFORMATION
  Report Type: 
  Country: None (occurrence: None)
  Receive Date: 20111122
  Receipt Date: 20110817
  Transmission Date: 20120403
  Serious: No
  Sender: FDA-Public Use
  Company Number: PHEH2011US00757

PATIENT
  Age: 49 Year
  Sex: Female
  Weight: 46.3 kg

DRUGS (1)
  1. GILENYA [Suspect]
     Indication: MULTIPLE SCLEROSIS
     Dosage: 0.5 MG, DAILY, ORAL
     Route: 048
     Dates: start: 20110624, end: 20110811

REACTIONS (5)
  - DECREASED APPETITE [None]
  - TONGUE DISCOLOURATION [None]
  - GLOSSODYNIA [None]
  - DRY MOUTH [None]
  - MOUTH HAEMORRHAGE [None]
